FAERS Safety Report 25796903 (Version 2)
Quarter: 2025Q4

REPORT INFORMATION
  Report Type: Spontaneous
  Country: US (occurrence: US)
  Receive Date: 20250912
  Receipt Date: 20251002
  Transmission Date: 20260118
  Serious: Yes (Other)
  Sender: CALLIDITAS THERAPEUTICS AB
  Company Number: US-Calliditas-2025CAL02144

PATIENT
  Age: 18 Year
  Sex: Male

DRUGS (1)
  1. TARPEYO [Suspect]
     Active Substance: BUDESONIDE
     Indication: Haematuria
     Route: 048
     Dates: start: 20250501

REACTIONS (17)
  - Acne [Unknown]
  - Weight decreased [Unknown]
  - Diarrhoea [Unknown]
  - Product residue present [Unknown]
  - Retching [Unknown]
  - Abdominal distension [Unknown]
  - Dehydration [Unknown]
  - Dizziness [Unknown]
  - Nausea [Unknown]
  - Pyrexia [Unknown]
  - Muscle spasms [Unknown]
  - Rectal haemorrhage [Unknown]
  - Haemorrhoids [Unknown]
  - Constipation [Unknown]
  - Headache [Not Recovered/Not Resolved]
  - Fatigue [Not Recovered/Not Resolved]
  - Loss of consciousness [Not Recovered/Not Resolved]

NARRATIVE: CASE EVENT DATE: 20250903
